FAERS Safety Report 18782244 (Version 1)
Quarter: 2021Q1

REPORT INFORMATION
  Report Type: Spontaneous
  Country: US (occurrence: US)
  Receive Date: 20210125
  Receipt Date: 20210125
  Transmission Date: 20210419
  Serious: Yes (Hospitalization, Other)
  Sender: FDA-Public Use
  Company Number: None

PATIENT
  Age: 71 Year
  Sex: Female

DRUGS (10)
  1. CYANOCOBALAMIN 1000MCG/ML [Concomitant]
  2. GABAPENTIN 600MG [Concomitant]
     Active Substance: GABAPENTIN
  3. RIZATRIPTAN 10MG [Concomitant]
     Active Substance: RIZATRIPTAN
  4. CELECOXIB 200MG [Concomitant]
     Active Substance: CELECOXIB
  5. DULOXEFINE 30MG [Concomitant]
  6. EZETIMIBE 10MG [Concomitant]
     Active Substance: EZETIMIBE
  7. PRALUENT [Suspect]
     Active Substance: ALIROCUMAB
     Route: 058
  8. QUETIAPINE 50MG [Concomitant]
     Active Substance: QUETIAPINE
  9. BUTALBITAI?ACETAMINOPHEN?CAFFEINE 50?32540MG [Concomitant]
  10. TIZANIDINE 4MG [Concomitant]
     Active Substance: TIZANIDINE

REACTIONS (1)
  - Myocardial infarction [None]
